FAERS Safety Report 7717968-8 (Version None)
Quarter: 2011Q3

REPORT INFORMATION
  Report Type: 
  Country: None (occurrence: None)
  Receive Date: 20110830
  Receipt Date: 20110822
  Transmission Date: 20111222
  Serious: Yes (Hospitalization)
  Sender: FDA-Public Use
  Company Number: JP-JNJFOC-20110811931

PATIENT
  Age: 43 Year
  Sex: Female

DRUGS (3)
  1. LEVOFLOXACIN [Suspect]
     Indication: COUGH
     Route: 048
     Dates: start: 20110820, end: 20110820
  2. LEVOFLOXACIN [Suspect]
     Indication: OROPHARYNGEAL PAIN
     Route: 048
     Dates: start: 20110820, end: 20110820
  3. LEVOFLOXACIN [Suspect]
     Indication: PYREXIA
     Route: 048
     Dates: start: 20110820, end: 20110820

REACTIONS (2)
  - DRUG ERUPTION [None]
  - RESPIRATORY FAILURE [None]
